FAERS Safety Report 23038824 (Version 1)
Quarter: 2023Q4

REPORT INFORMATION
  Report Type: Spontaneous
  Country: US (occurrence: US)
  Receive Date: 20231006
  Receipt Date: 20231006
  Transmission Date: 20240109
  Serious: No
  Sender: FDA-Public Use
  Company Number: US-PFIZER INC-202300316393

PATIENT
  Age: 56 Year
  Sex: Female

DRUGS (6)
  1. PAXLOVID [Suspect]
     Active Substance: NIRMATRELVIR\RITONAVIR
     Indication: COVID-19 immunisation
     Dosage: UNK
     Dates: start: 20230916, end: 20230921
  2. ESTROGEN NOS/PROGESTERONE [Concomitant]
     Dosage: UNK
     Dates: start: 20230116
  3. OSSOPAN BMD [Concomitant]
     Dates: start: 20210113
  4. OSSOPAN BMD [Concomitant]
     Dates: start: 20210113
  5. OSSOPAN BMD [Concomitant]
     Dates: start: 20210113
  6. VITAMIN D3 [Concomitant]
     Active Substance: CHOLECALCIFEROL
     Dosage: UNK
     Dates: start: 20210113

REACTIONS (2)
  - Disease recurrence [Recovering/Resolving]
  - COVID-19 [Recovering/Resolving]

NARRATIVE: CASE EVENT DATE: 20230929
